FAERS Safety Report 13935473 (Version 1)
Quarter: 2017Q3

REPORT INFORMATION
  Report Type: Spontaneous
  Country: US (occurrence: US)
  Receive Date: 20170902
  Receipt Date: 20170902
  Transmission Date: 20171127
  Serious: Yes (Other)
  Sender: FDA-Public Use
  Company Number: None

PATIENT
  Sex: Female
  Weight: 77.4 kg

DRUGS (2)
  1. IRON SUPPLEMENT [Concomitant]
     Active Substance: IRON
  2. AMBIEN [Suspect]
     Active Substance: ZOLPIDEM TARTRATE
     Indication: INSOMNIA
     Dosage: ?          QUANTITY:1 TABLET(S);?AS NEEDED ORAL
     Route: 048
     Dates: start: 20060218, end: 20080325

REACTIONS (7)
  - Somnambulism [None]
  - Loss of employment [None]
  - Disorientation [None]
  - Imprisonment [None]
  - Amnesia [None]
  - Loss of consciousness [None]
  - Road traffic accident [None]

NARRATIVE: CASE EVENT DATE: 20080325
